FAERS Safety Report 9855511 (Version 1)
Quarter: 2014Q1

REPORT INFORMATION
  Report Type: Spontaneous
  Country: US (occurrence: US)
  Receive Date: 20140130
  Receipt Date: 20140130
  Transmission Date: 20141002
  Serious: Yes (Death)
  Sender: FDA-Public Use
  Company Number: US-ASTELLAS-2014US000802

PATIENT
  Age: 38 Year
  Sex: Female
  Weight: 59 kg

DRUGS (1)
  1. MYCAMINE [Suspect]
     Indication: URINARY TRACT INFECTION
     Dosage: 150 MG, UID/QD
     Route: 042
     Dates: start: 20140121

REACTIONS (2)
  - Off label use [Unknown]
  - Death [Fatal]
